FAERS Safety Report 8396201-0 (Version None)
Quarter: 2012Q2

REPORT INFORMATION
  Report Type: 
  Country: None (occurrence: None)
  Receive Date: 20120530
  Receipt Date: 20120524
  Transmission Date: 20120825
  Serious: Yes (Death)
  Sender: FDA-Public Use
  Company Number: GB-GLAXOSMITHKLINE-B0803599A

PATIENT
  Age: 5 Year
  Sex: Female

DRUGS (33)
  1. FLUTICASONE PROPIONATE [Suspect]
     Indication: ASTHMA
     Dosage: 1500MCG PER DAY
     Dates: start: 19971229
  2. PULMICORT [Suspect]
     Indication: ASTHMA
     Dosage: 800MCG PER DAY
     Route: 055
     Dates: start: 19971105, end: 19971229
  3. CROMOLYN SODIUM [Concomitant]
     Dates: start: 19990120, end: 19990329
  4. FLUTICASONE PROPIONATE [Suspect]
     Dosage: 1000MCG PER DAY
     Dates: start: 19980319
  5. FLUTICASONE PROPIONATE [Suspect]
     Dosage: 1500MCG PER DAY
     Dates: start: 19991028
  6. FLUTICASONE PROPIONATE [Suspect]
     Dosage: 2000MCG PER DAY
  7. FLUTICASONE PROPIONATE [Suspect]
     Dosage: 750MCG PER DAY
     Dates: start: 19990623
  8. FLUTICASONE PROPIONATE [Suspect]
     Dosage: 750MCG PER DAY
     Dates: start: 20000626
  9. ALBUTEROL [Concomitant]
     Dates: start: 19971105
  10. FLUTICASONE PROPIONATE [Suspect]
     Dosage: 1500MCG PER DAY
     Dates: start: 19990120
  11. PULMICORT [Suspect]
     Dosage: 800MCG PER DAY
     Route: 055
     Dates: start: 20001010
  12. CROMOLYN SODIUM [Concomitant]
     Dates: start: 19971010
  13. PREDNISOLONE [Concomitant]
     Route: 048
     Dates: start: 19971107, end: 19971112
  14. FLUTICASONE PROPIONATE/SALMETEROL [Suspect]
     Dosage: 500MCG PER DAY
     Dates: start: 20010216
  15. FLUTICASONE PROPIONATE [Suspect]
     Dosage: 750MCG PER DAY
     Dates: start: 19980513
  16. FLUTICASONE PROPIONATE [Suspect]
     Dosage: 1000MCG PER DAY
     Dates: start: 19981201
  17. FLUTICASONE PROPIONATE [Suspect]
     Dosage: 1500MCG PER DAY
     Dates: start: 20000817
  18. PULMICORT [Suspect]
     Dosage: 1600MCG PER DAY
     Route: 055
     Dates: start: 20000914
  19. PREDNISOLONE [Concomitant]
     Route: 048
     Dates: start: 19981217
  20. GALPSEUD [Concomitant]
     Dates: start: 19981201
  21. GALPSEUD [Concomitant]
     Dates: start: 20011120
  22. FLUTICASONE PROPIONATE [Suspect]
     Dosage: 500MCG PER DAY
     Dates: start: 19980929
  23. PULMICORT [Suspect]
     Dosage: 1600MCG PER DAY
     Route: 055
     Dates: end: 20001026
  24. MONTELUKAST [Concomitant]
     Dates: start: 19991111
  25. FLUTICASONE PROPIONATE/SALMETEROL [Suspect]
     Indication: ASTHMA
     Dosage: 1000MCG PER DAY
     Dates: start: 20001026
  26. FLUTICASONE PROPIONATE/SALMETEROL [Suspect]
     Dosage: 1000MCG PER DAY
  27. FLUTICASONE PROPIONATE [Suspect]
     Dosage: 2000MCG PER DAY
     Dates: start: 19981217
  28. FLUTICASONE PROPIONATE [Suspect]
     Dosage: 2000MCG PER DAY
     Dates: start: 19991007
  29. COMBIVENT [Concomitant]
     Dates: start: 19970508
  30. ANTIBIOTICS [Concomitant]
     Dates: start: 19971222, end: 19971229
  31. SLO-PHYLLIN [Concomitant]
     Dates: start: 19990111
  32. FLUTICASONE PROPIONATE [Suspect]
     Dosage: 1000MCG PER DAY
     Dates: start: 19990329
  33. SEREVENT [Concomitant]

REACTIONS (1)
  - ADRENAL INSUFFICIENCY [None]
